FAERS Safety Report 4309629-2 (Version None)
Quarter: 2004Q1

REPORT INFORMATION
  Report Type: 
  Country: None (occurrence: None)
  Receive Date: 20040302
  Receipt Date: 20040220
  Transmission Date: 20041129
  Serious: Yes (Other)
  Sender: FDA-Public Use
  Company Number: US-JNJFOC-20040204914

PATIENT
  Age: 74 Year
  Sex: Female
  Weight: 64.4108 kg

DRUGS (12)
  1. REMICADE [Suspect]
     Indication: RHEUMATOID ARTHRITIS
     Dosage: INTRAVENOUS
     Route: 042
  2. METHOTREXATE [Concomitant]
  3. LOUCOVORIN (FOLINIC ACID) [Concomitant]
  4. PLAQUENIL [Concomitant]
  5. FOSAMAX [Concomitant]
  6. ZIAC (BISELECT) [Concomitant]
  7. ASPIRIN [Concomitant]
  8. MULTIVITAMIN (MULTIVITAMINS) [Concomitant]
  9. CALCIUM + D (CALCIUM) [Concomitant]
  10. TYLENOL [Concomitant]
  11. TUMS (CALCIUM CARBONATE) [Concomitant]
  12. SIMETHICONE (DIMETICONE, ACTIVATED) [Concomitant]

REACTIONS (1)
  - BASAL CELL CARCINOMA [None]
